FAERS Safety Report 4408866-6 (Version None)
Quarter: 2004Q3

REPORT INFORMATION
  Report Type: 
  Country: None (occurrence: None)
  Receive Date: 20040727
  Receipt Date: 20031114
  Transmission Date: 20050211
  Serious: Yes (Hospitalization)
  Sender: FDA-Public Use
  Company Number: JP-GLAXOSMITHKLINE-B0315042A

PATIENT
  Age: 32 Year
  Sex: Female
  Weight: 47 kg

DRUGS (10)
  1. EPOPROSTENOL SODIUM [Suspect]
     Indication: PULMONARY HYPERTENSION
     Dosage: 1MG PER DAY
     Route: 042
     Dates: start: 20021011
  2. FUROSEMIDE [Concomitant]
  3. SPIRONOLACTONE [Concomitant]
  4. DIGOXIN [Concomitant]
  5. NIFEDIPINE [Concomitant]
  6. FERROUS CITRATE [Concomitant]
  7. TEPRENONE [Concomitant]
  8. OXYGEN [Concomitant]
  9. LANIRAPID [Concomitant]
  10. SELBEX [Concomitant]

REACTIONS (1)
  - HAEMOPTYSIS [None]
